FAERS Safety Report 23504897 (Version 1)
Quarter: 2024Q1

REPORT INFORMATION
  Report Type: Spontaneous
  Country: GB (occurrence: GB)
  Receive Date: 20240209
  Receipt Date: 20240209
  Transmission Date: 20240410
  Serious: No
  Sender: FDA-Public Use
  Company Number: None

PATIENT
  Age: 52 Year
  Sex: Female
  Weight: 97 kg

DRUGS (22)
  1. GABAPENTIN [Suspect]
     Active Substance: GABAPENTIN
     Indication: Product used for unknown indication
     Dosage: 100 MILLIGRAM, CAPSULE
     Route: 065
  2. AMITRIPTYLINE HYDROCHLORIDE [Concomitant]
     Active Substance: AMITRIPTYLINE HYDROCHLORIDE
     Indication: Product used for unknown indication
     Dosage: UNK, HS (TAKE ONE TABLET TO BE TAKEN)
     Route: 065
     Dates: start: 20221016, end: 20221030
  3. ATORVASTATIN [Concomitant]
     Active Substance: ATORVASTATIN
     Indication: Product used for unknown indication
     Dosage: UNK, HS (TAKE ONE TABLET TO BE TAKEN)
     Route: 065
     Dates: start: 20221016, end: 20221030
  4. BUPRENORPHINE [Concomitant]
     Active Substance: BUPRENORPHINE
     Indication: Product used for unknown indication
     Dosage: UNK (1 PATCH EVERY 7 DAYS)
     Route: 065
     Dates: start: 20221016, end: 20221030
  5. CHLORPHENIRAMINE MALEATE [Concomitant]
     Active Substance: CHLORPHENIRAMINE MALEATE
     Indication: Product used for unknown indication
     Dosage: UNK (1 TABLET)
     Route: 065
     Dates: start: 20221014, end: 20221016
  6. CIPROFLOXACIN [Concomitant]
     Active Substance: CIPROFLOXACIN
     Indication: Product used for unknown indication
     Dosage: UNK (3 TABLET)
     Route: 065
     Dates: start: 20221013, end: 20221013
  7. CYCLIZINE [Concomitant]
     Active Substance: CYCLIZINE
     Indication: Product used for unknown indication
     Dosage: UNK (1 TABLET)
     Route: 065
     Dates: start: 20221014, end: 20221016
  8. DALTEPARIN [Concomitant]
     Active Substance: DALTEPARIN
     Indication: Product used for unknown indication
     Dosage: 5000 UNITS
     Route: 065
     Dates: start: 20221013, end: 20221016
  9. ESTRADIOL [Concomitant]
     Active Substance: ESTRADIOL
     Indication: Product used for unknown indication
     Dosage: UNK (4 APPLICATION - ADMIN TIMES: 22:00 (TOPICAL))
     Route: 065
     Dates: start: 20221016, end: 20221030
  10. DEXTROSE [Concomitant]
     Active Substance: DEXTROSE\DEXTROSE MONOHYDRATE
     Indication: Product used for unknown indication
     Dosage: UNK (INFUSION)
     Route: 065
     Dates: start: 20221013, end: 20221016
  11. INDAPAMIDE [Concomitant]
     Active Substance: INDAPAMIDE
     Indication: Product used for unknown indication
     Dosage: UNK, QD (TAKE ONE TABLET)
     Route: 065
     Dates: start: 20221016, end: 20221030
  12. LANSOPRAZOLE [Concomitant]
     Active Substance: LANSOPRAZOLE
     Indication: Product used for unknown indication
     Dosage: UNK, QD (TAKE ONE CAPSULE)
     Route: 065
     Dates: start: 20221016, end: 20221030
  13. LEVOTHYROXINE [Concomitant]
     Active Substance: LEVOTHYROXINE\LEVOTHYROXINE SODIUM
     Indication: Product used for unknown indication
     Dosage: UNK, QD (TAKE TWO TABLET)
     Route: 065
     Dates: start: 20221016, end: 20221030
  14. MIRABEGRON [Concomitant]
     Active Substance: MIRABEGRON
     Indication: Product used for unknown indication
     Dosage: UNK, QD (TAKE ONE TABLET)
     Route: 065
     Dates: start: 20221016, end: 20221030
  15. MORPHINE SULFATE [Concomitant]
     Active Substance: MORPHINE SULFATE
     Indication: Product used for unknown indication
     Dosage: 10 MLS WHEN REQUIRED EVERY 4 HOURS
     Route: 065
     Dates: start: 20221016, end: 20221030
  16. NAPROXEN [Concomitant]
     Active Substance: NAPROXEN
     Indication: Product used for unknown indication
     Dosage: UNK (TAKE TWO TABLETS TO BE TAKEN TWICE DAILY WHEN R)
     Route: 065
     Dates: start: 20221016, end: 20221030
  17. INSULIN ASPART [Concomitant]
     Active Substance: INSULIN ASPART
     Indication: Product used for unknown indication
     Dosage: 08:00 (80 UNIT) 18:00 (60 UNIT)
     Route: 065
     Dates: start: 20221016, end: 20221030
  18. OZEMPIC [Concomitant]
     Active Substance: SEMAGLUTIDE
     Indication: Product used for unknown indication
     Dosage: UNK
     Route: 065
     Dates: start: 20221013, end: 20221016
  19. ACETAMINOPHEN [Concomitant]
     Active Substance: ACETAMINOPHEN
     Indication: Product used for unknown indication
     Dosage: UNK, 1 G
     Route: 065
     Dates: start: 20221013, end: 20221016
  20. RAMIPRIL [Concomitant]
     Active Substance: RAMIPRIL
     Indication: Product used for unknown indication
     Dosage: UNK, BID (TAKE ONE CAPSULE TO BE TAKEN)
     Route: 065
     Dates: start: 20221016, end: 20221030
  21. SODIUM CHLORIDE [Concomitant]
     Active Substance: SODIUM CHLORIDE
     Indication: Product used for unknown indication
     Dosage: 5 MILLILITER
     Route: 065
     Dates: start: 20221013, end: 20221016
  22. SUMATRIPTAN [Concomitant]
     Active Substance: SUMATRIPTAN
     Indication: Product used for unknown indication
     Dosage: UNK (WHEN REQUIRED)
     Route: 065
     Dates: start: 20221016, end: 20221030

REACTIONS (1)
  - Rash [Recovered/Resolved]
